FAERS Safety Report 7532360-7 (Version None)
Quarter: 2011Q2

REPORT INFORMATION
  Report Type: 
  Country: None (occurrence: None)
  Receive Date: 20110608
  Receipt Date: 20110601
  Transmission Date: 20111010
  Serious: Yes (Other)
  Sender: FDA-Public Use
  Company Number: FR-PFIZER INC-2010128844

PATIENT
  Sex: Female
  Weight: 83 kg

DRUGS (5)
  1. FENOFIBRATE [Concomitant]
  2. GLYBURIDE [Concomitant]
  3. EXEMESTANE [Suspect]
     Indication: BREAST CANCER
     Dosage: UNK
  4. METFORMIN HCL [Concomitant]
     Indication: DIABETES MELLITUS
  5. LIRAGLUTIDE (NN2211) [Concomitant]

REACTIONS (1)
  - HYPERCHOLESTEROLAEMIA [None]
